FAERS Safety Report 5197837-0 (Version None)
Quarter: 2006Q4

REPORT INFORMATION
  Report Type: 
  Country: None (occurrence: None)
  Receive Date: 20061228
  Receipt Date: 20061215
  Transmission Date: 20070319
  Serious: Yes (Hospitalization)
  Sender: FDA-Public Use
  Company Number: 2006BI018438

PATIENT
  Age: 61 Year
  Sex: Female
  Weight: 49.4421 kg

DRUGS (3)
  1. AVONEX [Suspect]
     Indication: MULTIPLE SCLEROSIS
     Dosage: 30 UG;QW;IM
     Route: 030
     Dates: start: 20030101
  2. TRAZODONE HCL [Concomitant]
  3. BUPROPION HCL [Concomitant]

REACTIONS (9)
  - DEPRESSION [None]
  - HYPERTENSION [None]
  - INTERVERTEBRAL DISC PROTRUSION [None]
  - MONOPLEGIA [None]
  - OSTEOPOROSIS [None]
  - PAIN [None]
  - POSTOPERATIVE THROMBOSIS [None]
  - TREMOR [None]
  - URINARY INCONTINENCE [None]
